FAERS Safety Report 7207756-3 (Version None)
Quarter: 2011Q1

REPORT INFORMATION
  Report Type: 
  Country: None (occurrence: None)
  Receive Date: 20110103
  Receipt Date: 20101220
  Transmission Date: 20110831
  Serious: Yes (Other)
  Sender: FDA-Public Use
  Company Number: GB-MYLANLABS-2010S1023280

PATIENT
  Age: 63 Year
  Sex: Female

DRUGS (2)
  1. CHLORPROMAZINE [Concomitant]
     Indication: PRODUCT USED FOR UNKNOWN INDICATION
  2. TAMOXIFEN CITRATE [Suspect]
     Indication: BREAST CANCER
     Route: 048

REACTIONS (3)
  - HEPATIC CIRRHOSIS [None]
  - HEPATIC STEATOSIS [None]
  - SPLENOMEGALY [None]
